FAERS Safety Report 4932141-4 (Version None)
Quarter: 2006Q1

REPORT INFORMATION
  Report Type: 
  Country: None (occurrence: None)
  Receive Date: 20060303
  Receipt Date: 20060106
  Transmission Date: 20060701
  Serious: Yes (Hospitalization)
  Sender: FDA-Public Use
  Company Number: JP-ROCHE-431661

PATIENT
  Age: 24 Month
  Sex: Female
  Weight: 13 kg

DRUGS (9)
  1. TAMIFLU [Suspect]
     Indication: INFLUENZA
     Dosage: FORM: DRY SYRUP.
     Route: 048
     Dates: start: 20041225, end: 20041225
  2. TAMIFLU [Suspect]
     Route: 048
     Dates: start: 20041226, end: 20041228
  3. TAMIFLU [Suspect]
     Route: 048
     Dates: start: 20041229, end: 20041229
  4. BANAN [Concomitant]
     Route: 048
     Dates: start: 20041225, end: 20050103
  5. ASVERIN [Concomitant]
     Route: 048
     Dates: start: 20041225, end: 20050103
  6. MUCODYNE [Concomitant]
     Route: 048
     Dates: start: 20041225, end: 20050103
  7. IFRASARL [Concomitant]
     Dosage: NAME REPORTED AS IFRASARL.
     Route: 048
     Dates: start: 20041225, end: 20050103
  8. MEPTIN [Concomitant]
     Route: 048
     Dates: start: 20041225, end: 20050103
  9. SIMPLE SYRUP [Concomitant]
     Route: 048
     Dates: start: 20041225, end: 20050103

REACTIONS (2)
  - DIARRHOEA [None]
  - HENOCH-SCHONLEIN PURPURA [None]
